FAERS Safety Report 4746053-2 (Version None)
Quarter: 2005Q3

REPORT INFORMATION
  Report Type: 
  Country: None (occurrence: None)
  Receive Date: 20050816
  Receipt Date: 20050805
  Transmission Date: 20060218
  Serious: Yes (Hospitalization)
  Sender: FDA-Public Use
  Company Number: PHRM2005FR02255

PATIENT
  Age: 58 Year
  Sex: Female
  Weight: 89 kg

DRUGS (3)
  1. VOLTAREN [Suspect]
     Indication: BACK PAIN
     Route: 065
     Dates: start: 20040601, end: 20040601
  2. CHRONADALATE [Concomitant]
     Indication: ESSENTIAL HYPERTENSION
     Route: 048
  3. TEMGESIC [Concomitant]
     Indication: ARTHRALGIA
     Route: 048

REACTIONS (5)
  - BURNING SENSATION [None]
  - PHARYNGEAL OEDEMA [None]
  - PRURITUS [None]
  - RASH MACULO-PAPULAR [None]
  - TONGUE OEDEMA [None]
